FAERS Safety Report 17052569 (Version 1)
Quarter: 2019Q4

REPORT INFORMATION
  Report Type: Spontaneous
  Country: US (occurrence: US)
  Receive Date: 20191119
  Receipt Date: 20191119
  Transmission Date: 20200122
  Serious: Yes (Other)
  Sender: FDA-Public Use
  Company Number: None

PATIENT
  Age: 84 Year
  Sex: Female
  Weight: 60 kg

DRUGS (16)
  1. CILOSTAZOL 100MG TABS [Concomitant]
     Dates: start: 20130129
  2. ASCORBIC ACID 500MG TABS [Concomitant]
     Dates: start: 20130719
  3. ASPIRIN 81MG CHEW TABS [Concomitant]
     Dates: start: 20130129
  4. GABAPENTIN 300MG CAPS [Concomitant]
     Active Substance: GABAPENTIN
     Dates: start: 20171116
  5. MULTIPLE VITAMIN [Concomitant]
     Active Substance: VITAMINS
     Dates: start: 20130719
  6. AMLODIPINE-BENAZEPRIL 5-10MG [Concomitant]
     Dates: start: 20130719
  7. FOLIC ACID 1MG TABS [Concomitant]
     Dates: start: 20180828
  8. SIMVASTATIN 20MG TABS [Concomitant]
     Dates: start: 20171026
  9. ALLOPURINOL 100MG TABLETS [Concomitant]
     Dates: start: 20190701
  10. TRIMETHOPRIM-SULFAMETHOXAZOLE SUSPENSION [Concomitant]
     Dates: start: 20180828
  11. VENETOCLAX. [Suspect]
     Active Substance: VENETOCLAX
     Indication: CHRONIC LYMPHOCYTIC LEUKAEMIA
     Route: 048
     Dates: start: 20171215
  12. ACYCLOVIR SUSPENSION [Concomitant]
     Active Substance: ACYCLOVIR
     Dates: start: 20180322
  13. PANTOPRAZOLE 40MG TAB [Concomitant]
     Dates: start: 20140316
  14. POTASSIUM CHLORIDE 10MEQ CAP [Concomitant]
     Dates: start: 20161006
  15. VITAMIN D3 1000 UNIT TABS [Concomitant]
     Dates: start: 20130129
  16. PHENYLEPHRINE-DM LIQUID [Concomitant]
     Dates: start: 20190507

REACTIONS (1)
  - Skin hyperpigmentation [None]

NARRATIVE: CASE EVENT DATE: 20191112
